FAERS Safety Report 5960671-5 (Version None)
Quarter: 2008Q4

REPORT INFORMATION
  Report Type: 
  Country: None (occurrence: None)
  Receive Date: 20081120
  Receipt Date: 20080818
  Transmission Date: 20090506
  Serious: No
  Sender: FDA-Public Use
  Company Number: US-ABBOTT-08P-163-0471296-00

PATIENT
  Sex: Female
  Weight: 79.45 kg

DRUGS (7)
  1. BIAXIN [Suspect]
     Indication: BRONCHITIS
     Route: 048
     Dates: end: 20050101
  2. BIAXIN [Suspect]
     Indication: UPPER RESPIRATORY TRACT INFECTION
  3. LOTREL [Concomitant]
     Indication: HYPERTENSION
  4. DYAZIDE [Concomitant]
     Indication: HYPERTENSION
  5. CLONIDINE [Concomitant]
     Indication: HYPERTENSION
  6. NOVALOG INSULIN [Concomitant]
     Indication: DIABETES MELLITUS
  7. INSULIN GLARGINE [Concomitant]
     Indication: DIABETES MELLITUS

REACTIONS (1)
  - PRURITUS [None]
